FAERS Safety Report 24351101 (Version 1)
Quarter: 2024Q3

REPORT INFORMATION
  Report Type: Report from Study
  Country: US (occurrence: US)
  Receive Date: 20240923
  Receipt Date: 20240923
  Transmission Date: 20241017
  Serious: No
  Sender: ROCHE
  Company Number: US-ROCHE-2862930

PATIENT
  Age: 53 Year
  Sex: Female
  Weight: 76.66 kg

DRUGS (5)
  1. HERCEPTIN [Suspect]
     Active Substance: TRASTUZUMAB
     Indication: Breast cancer female
     Route: 065
     Dates: start: 20210506, end: 20220422
  2. TAXOL [Concomitant]
     Active Substance: PACLITAXEL
     Route: 065
     Dates: start: 20210506
  3. LIDOCAINE\PRILOCAINE [Concomitant]
     Active Substance: LIDOCAINE\PRILOCAINE
     Route: 061
  4. VITAMIN D2 [Concomitant]
     Active Substance: ERGOCALCIFEROL
     Dosage: 1250MCG
     Route: 048
  5. DECADRON [Concomitant]
     Active Substance: DEXAMETHASONE

REACTIONS (4)
  - Fatigue [Unknown]
  - Epistaxis [Unknown]
  - Body temperature fluctuation [Unknown]
  - Visual impairment [Not Recovered/Not Resolved]
